FAERS Safety Report 21062551 (Version 2)
Quarter: 2022Q3

REPORT INFORMATION
  Report Type: Report from Study
  Country: DE (occurrence: DE)
  Receive Date: 20220711
  Receipt Date: 20220714
  Transmission Date: 20221027
  Serious: Yes (Death, Hospitalization, Other)
  Sender: FDA-Public Use
  Company Number: DE-NOVARTISPH-NVSC2022DE003313

PATIENT
  Age: 61 Year
  Sex: Female
  Weight: 125 kg

DRUGS (4)
  1. CAPMATINIB [Suspect]
     Active Substance: CAPMATINIB
     Indication: Non-small cell lung cancer
     Dosage: 400 MG, BID
     Route: 065
     Dates: start: 20211221
  2. CAPMATINIB [Suspect]
     Active Substance: CAPMATINIB
     Indication: Adenocarcinoma
     Dosage: 200 MG, BID ((1-0-1), 400 MG DAILY DOSE)
     Route: 065
     Dates: start: 20211221, end: 20220103
  3. CAPMATINIB [Suspect]
     Active Substance: CAPMATINIB
     Dosage: 150 MG, BID
     Route: 065
     Dates: start: 20220304
  4. CAPMATINIB [Suspect]
     Active Substance: CAPMATINIB
     Dosage: 400 MG, QD
     Route: 065
     Dates: start: 20220304, end: 20220505

REACTIONS (4)
  - Respiratory failure [Fatal]
  - Renal failure [Unknown]
  - Blood creatinine increased [Not Recovered/Not Resolved]
  - Dehydration [Unknown]

NARRATIVE: CASE EVENT DATE: 20220103
